FAERS Safety Report 19614451 (Version 1)
Quarter: 2021Q3

REPORT INFORMATION
  Report Type: Spontaneous
  Country: CU (occurrence: CU)
  Receive Date: 20210727
  Receipt Date: 20210727
  Transmission Date: 20211014
  Serious: Yes (Hospitalization)
  Sender: FDA-Public Use
  Company Number: CU-LUPIN PHARMACEUTICALS INC.-2021-12817

PATIENT
  Age: 53 Year
  Sex: Female

DRUGS (8)
  1. CEFTRIAXONE. [Suspect]
     Active Substance: CEFTRIAXONE
     Indication: COVID-19
     Dosage: UNK
     Route: 065
  2. CHLOROQUINE. [Suspect]
     Active Substance: CHLOROQUINE
     Indication: COVID-19
     Dosage: UNK
     Route: 065
  3. DOBUTAMINE [Concomitant]
     Active Substance: DOBUTAMINE HYDROCHLORIDE
     Indication: HYPOTENSION
     Dosage: 20 MICROGRAM/KILOGRAM
     Route: 065
  4. INTERFERON ALFA NOS [Suspect]
     Active Substance: INTERFERON ALFA-2A OR INTERFERON ALFA-2B
     Indication: COVID-19
     Dosage: UNK
     Route: 065
  5. STREPTOKINASE [Concomitant]
     Active Substance: STREPTOKINASE
     Dosage: 100000 INTERNATIONAL UNIT (EVERY HOUR)
     Route: 065
  6. ITOLIZUMAB. [Suspect]
     Active Substance: ITOLIZUMAB
     Indication: COVID-19
     Dosage: UNK
     Route: 065
  7. LOPINAVIR/RITONAVIR [Suspect]
     Active Substance: LOPINAVIR\RITONAVIR
     Indication: COVID-19
     Dosage: UNK
     Route: 065
  8. STREPTOKINASE [Concomitant]
     Active Substance: STREPTOKINASE
     Indication: THROMBOLYSIS
     Dosage: 250000 INTERNATIONAL UNIT (FOR 1 HOUR)
     Route: 065

REACTIONS (2)
  - Drug ineffective for unapproved indication [Unknown]
  - Off label use [Unknown]
